FAERS Safety Report 9234464 (Version 1)
Quarter: 2013Q2

REPORT INFORMATION
  Report Type: Spontaneous
  Country: US (occurrence: US)
  Receive Date: 20130416
  Receipt Date: 20130416
  Transmission Date: 20140414
  Serious: No
  Sender: FDA-Public Use
  Company Number: US-BANPHARM-20120165

PATIENT
  Age: 74 Year
  Sex: Male
  Weight: 68.18 kg

DRUGS (5)
  1. ALEVE LIQUID GELS 220 MG [Suspect]
     Route: 048
     Dates: start: 20120914
  2. ATENOLOL/CHLORTHALIDONE [Concomitant]
  3. CRESTOR [Concomitant]
  4. PLAVIX [Concomitant]
  5. FLOMAX [Concomitant]

REACTIONS (2)
  - Foreign body [Recovered/Resolved]
  - Oesophageal discomfort [Recovered/Resolved]
